FAERS Safety Report 7995373-7 (Version None)
Quarter: 2011Q4

REPORT INFORMATION
  Report Type: 
  Country: None (occurrence: None)
  Receive Date: 20111220
  Receipt Date: 20111219
  Transmission Date: 20120403
  Serious: Yes (Life-Threatening)
  Sender: FDA-Public Use
  Company Number: US-GLAXOSMITHKLINE-A0946784A

PATIENT
  Age: 83 Year
  Sex: Male
  Weight: 70.5 kg

DRUGS (3)
  1. VESICARE [Concomitant]
  2. VITAMIN D [Concomitant]
  3. ARZERRA [Suspect]
     Indication: CHRONIC LYMPHOCYTIC LEUKAEMIA
     Route: 042
     Dates: start: 20110912, end: 20110927

REACTIONS (2)
  - DIARRHOEA [None]
  - COLITIS [None]
